FAERS Safety Report 4719204-3 (Version None)
Quarter: 2005Q3

REPORT INFORMATION
  Report Type: 
  Country: None (occurrence: None)
  Receive Date: 20050720
  Receipt Date: 20050706
  Transmission Date: 20060218
  Serious: Yes (Hospitalization, Other)
  Sender: FDA-Public Use
  Company Number: 2005075750

PATIENT
  Age: 10 Year
  Sex: Female
  Weight: 22 kg

DRUGS (2)
  1. GENOTONORM (SOMATROPIN) [Suspect]
     Indication: HYPOPITUITARISM
     Dosage: 0.7 MG (12 MG, DAILY), SUBCUTANEOUS
     Route: 058
     Dates: start: 20040623
  2. TRIPTORELIN (TRIPTORELIN) [Concomitant]

REACTIONS (5)
  - CONVULSION [None]
  - CYST [None]
  - EPILEPSY [None]
  - OPTIC NERVE GLIOMA [None]
  - POST PROCEDURAL COMPLICATION [None]
